FAERS Safety Report 8560899-4 (Version None)
Quarter: 2012Q3

REPORT INFORMATION
  Report Type: 
  Country: None (occurrence: None)
  Receive Date: 20120802
  Receipt Date: 20120723
  Transmission Date: 20120928
  Serious: Yes (Hospitalization, Other)
  Sender: FDA-Public Use
  Company Number: DE-TEVA-350129GER

PATIENT
  Age: 66 Year
  Sex: Male

DRUGS (9)
  1. VALPROIC ACID [Suspect]
     Indication: STATUS EPILEPTICUS
     Route: 042
  2. LITHIUM CARBONATE [Suspect]
     Indication: DEPRESSION
     Dosage: 600 MILLIGRAM;
     Route: 065
  3. MIANSERIN [Concomitant]
     Dosage: 10 MILLIGRAM;
     Route: 065
  4. TAMSULOSIN HCL [Concomitant]
     Dosage: .4 MILLIGRAM;
     Route: 065
  5. HALOPERIDOL [Concomitant]
     Dosage: UP TO 5 MG/DAY
     Route: 065
  6. VALPROIC ACID [Suspect]
     Dosage: 1200 MILLIGRAM;
     Route: 048
  7. LORAZEPAM [Suspect]
     Indication: STATUS EPILEPTICUS
     Dosage: 4 MILLIGRAM;
     Route: 065
  8. QUETIAPINE [Concomitant]
     Dosage: 25 MILLIGRAM;
     Route: 065
  9. ALLOPURINOL [Concomitant]
     Dosage: 150 MILLIGRAM;
     Route: 065

REACTIONS (3)
  - ELECTROENCEPHALOGRAM ABNORMAL [None]
  - STATUS EPILEPTICUS [None]
  - TOXIC ENCEPHALOPATHY [None]
